FAERS Safety Report 7285396-8 (Version None)
Quarter: 2011Q1

REPORT INFORMATION
  Report Type: 
  Country: None (occurrence: None)
  Receive Date: 20110121
  Receipt Date: 20060305
  Transmission Date: 20110831
  Serious: No
  Sender: FDA-Public Use
  Company Number: 037

PATIENT
  Sex: Female
  Weight: 104 kg

DRUGS (5)
  1. DEPAKOTE [Concomitant]
  2. FAZACLO ODT [Suspect]
     Indication: PSYCHOTIC DISORDER
     Dosage: 25 MG PO DAILY
     Route: 048
     Dates: start: 20060223, end: 20060302
  3. HALDOL [Concomitant]
  4. METFORMIN [Concomitant]
  5. DOCUSATE [Concomitant]

REACTIONS (1)
  - RASH [None]
